FAERS Safety Report 16613289 (Version 1)
Quarter: 2019Q3

REPORT INFORMATION
  Report Type: Not Available
  Country: None (occurrence: CN)
  Receive Date: 20190722
  Receipt Date: 20190722
  Transmission Date: 20191004
  Serious: Yes (Disabling)
  Sender: FDA-Public Use
  Company Number: CN-JIANGSU HENGRUI MEDICINE CO., LTD.-2071150

PATIENT
  Age: 73 Year

DRUGS (1)
  1. CYCLOPHOSPHAMIDE FOR INJECTION USP, 500 MG, 1 G AND 2 G PER SINGLE-DOS [Suspect]
     Active Substance: CYCLOPHOSPHAMIDE
     Indication: HENOCH-SCHONLEIN PURPURA NEPHRITIS
     Route: 041
     Dates: start: 20190601, end: 20190705

REACTIONS (6)
  - Adverse drug reaction [Recovering/Resolving]
  - Nausea [Unknown]
  - Proteinuria [Unknown]
  - Haematuria [Unknown]
  - Gastritis [Unknown]
  - Vomiting [Unknown]

NARRATIVE: CASE EVENT DATE: 20190706
